FAERS Safety Report 6137326-X (Version None)
Quarter: 2009Q1

REPORT INFORMATION
  Report Type: 
  Country: None (occurrence: None)
  Receive Date: 20090330
  Receipt Date: 20090325
  Transmission Date: 20090719
  Serious: Yes (Hospitalization)
  Sender: FDA-Public Use
  Company Number: US-ROXANE LABORATORIES, INC.-2009-RO-00283RO

PATIENT
  Age: 66 Year
  Sex: Female

DRUGS (5)
  1. HYDROMORPHONE HCL [Suspect]
     Indication: ANALGESIA
     Route: 042
  2. BUPIVACAINE [Suspect]
     Route: 042
  3. DEXTROSE 5% AND SODIUM CHLORIDE 0.45% [Suspect]
  4. NALOXONE [Concomitant]
     Dosage: .2MG
  5. ASPIRIN [Concomitant]

REACTIONS (2)
  - BRAIN INJURY [None]
  - ISCHAEMIC STROKE [None]
